FAERS Safety Report 15072838 (Version 1)
Quarter: 2018Q2

REPORT INFORMATION
  Report Type: Report from Study
  Country: US (occurrence: US)
  Receive Date: 20180627
  Receipt Date: 20180627
  Transmission Date: 20180711
  Serious: Yes (Hospitalization, Other)
  Sender: FDA-Public Use
  Company Number: US-GILEAD-2018-0344381

PATIENT
  Age: 79 Year
  Sex: Female
  Weight: 97.51 kg

DRUGS (9)
  1. DIGOXIN. [Concomitant]
     Active Substance: DIGOXIN
  2. METFORMIN [Concomitant]
     Active Substance: METFORMIN HYDROCHLORIDE
  3. XARELTO [Concomitant]
     Active Substance: RIVAROXABAN
  4. SPIRONOLACTONE. [Concomitant]
     Active Substance: SPIRONOLACTONE
  5. AMBRISENTAN [Suspect]
     Active Substance: AMBRISENTAN
     Indication: PRODUCT USED FOR UNKNOWN INDICATION
     Dosage: 5 MG, QD
     Route: 065
     Dates: start: 20180319
  6. GLIPIZIDE. [Concomitant]
     Active Substance: GLIPIZIDE
  7. WARFARIN [Concomitant]
     Active Substance: WARFARIN
  8. BUMEX [Suspect]
     Active Substance: BUMETANIDE
     Indication: CARDIAC FAILURE
     Dosage: 3 MG, UNK
     Route: 048
  9. METOPROLOL. [Concomitant]
     Active Substance: METOPROLOL

REACTIONS (4)
  - Pulmonary hypertension [Unknown]
  - Oedema peripheral [Unknown]
  - Right ventricular failure [Unknown]
  - Dyspnoea [Recovered/Resolved]
